FAERS Safety Report 8434838-0 (Version None)
Quarter: 2012Q2

REPORT INFORMATION
  Report Type: 
  Country: None (occurrence: None)
  Receive Date: 20120614
  Receipt Date: 20120531
  Transmission Date: 20120825
  Serious: Yes (Death, Other)
  Sender: FDA-Public Use
  Company Number: TW-RANBAXY-2011RR-43933

PATIENT
  Age: 54 Year
  Sex: Female

DRUGS (8)
  1. ZOLPIDEM [Suspect]
     Indication: INSOMNIA
     Dosage: 20 MG, UNK
     Route: 065
  2. QUETIAPINE [Suspect]
     Indication: DEPRESSION
     Dosage: 50 MG/DAY
     Route: 065
  3. CLONAZEPAM [Suspect]
     Indication: INSOMNIA
     Dosage: 1 MG
     Route: 065
  4. VENLAFAXINE HCL [Suspect]
     Indication: DEPRESSION
     Dosage: 75 MG/DAY
     Route: 065
  5. PALIPERIDONE [Concomitant]
     Indication: PRODUCT USED FOR UNKNOWN INDICATION
     Dosage: 3 MG/DAY
     Route: 065
  6. VENLAFAXINE HCL [Suspect]
     Dosage: 225 MG/DAY
  7. VENLAFAXINE HCL [Suspect]
     Dosage: 37.5 MG/DAY
     Route: 065
  8. ZOLPIDEM [Suspect]
     Dosage: 10 MG/DAY
     Route: 065

REACTIONS (5)
  - DRUG INTERACTION [None]
  - DIZZINESS [None]
  - SEDATION [None]
  - DRY MOUTH [None]
  - POLLAKIURIA [None]
